FAERS Safety Report 18538832 (Version 2)
Quarter: 2020Q4

REPORT INFORMATION
  Report Type: Other
  Country: CA (occurrence: CA)
  Receive Date: 20201123
  Receipt Date: 20201125
  Transmission Date: 20210114
  Serious: Yes (Other)
  Sender: FDA-Public Use
  Company Number: CA-CELLTRION INC.-2020CA031950

PATIENT

DRUGS (16)
  1. BISOPROLOL [Concomitant]
     Active Substance: BISOPROLOL
  2. METOPROLOL. [Concomitant]
     Active Substance: METOPROLOL
  3. METHYLPREDNISOLONE. [Concomitant]
     Active Substance: METHYLPREDNISOLONE
     Indication: PREMEDICATION
     Dosage: 100 MG
     Route: 042
  4. FERROUS SULFATE. [Concomitant]
     Active Substance: FERROUS SULFATE
  5. FUROSEMIDE. [Concomitant]
     Active Substance: FUROSEMIDE
  6. PREDNISONE. [Concomitant]
     Active Substance: PREDNISONE
  7. RABEPRAZOLE [Concomitant]
     Active Substance: RABEPRAZOLE
  8. MYCOPHENOLATE [Concomitant]
     Active Substance: MYCOPHENOLIC ACID
  9. VIT D [Concomitant]
     Active Substance: VITAMIN D NOS
  10. ACETAMINOPHEN. [Concomitant]
     Active Substance: ACETAMINOPHEN
     Indication: PREMEDICATION
     Dosage: 650 MG
     Route: 048
  11. MINOXIDIL. [Concomitant]
     Active Substance: MINOXIDIL
  12. ALENDRONATE SODIUM. [Concomitant]
     Active Substance: ALENDRONATE SODIUM
  13. MEPRON [Concomitant]
     Active Substance: ATOVAQUONE
  14. RITUXIMAB (UNKNOWN) [Suspect]
     Active Substance: RITUXIMAB
     Indication: GRANULOMATOSIS WITH POLYANGIITIS
     Dosage: 500 MG
     Route: 042
  15. DIPHENHYDRAMINE HYDROCHLORIDE. [Concomitant]
     Active Substance: DIPHENHYDRAMINE HYDROCHLORIDE
     Indication: PREMEDICATION
     Dosage: 50 MG
     Route: 048
  16. CALCIUM [Concomitant]
     Active Substance: CALCIUM

REACTIONS (1)
  - Neutropenia [Recovered/Resolved]
